FAERS Safety Report 10459962 (Version 2)
Quarter: 2014Q4

REPORT INFORMATION
  Report Type: Spontaneous
  Country: US (occurrence: US)
  Receive Date: 20140917
  Receipt Date: 20141017
  Transmission Date: 20150528
  Serious: Yes (Death, Hospitalization, Other)
  Sender: FDA-Public Use
  Company Number: US-B.I. PHARMACEUTICALS,INC./RIDGEFIELD-2014-BI-43485BP

PATIENT
  Age: 83 Year
  Sex: Female

DRUGS (3)
  1. ASPIRIN. [Concomitant]
     Active Substance: ASPIRIN
     Indication: PRODUCT USED FOR UNKNOWN INDICATION
     Route: 065
  2. PRADAXA [Suspect]
     Active Substance: DABIGATRAN ETEXILATE MESYLATE
     Indication: ATRIAL FIBRILLATION
     Route: 065
  3. PEPCID [Concomitant]
     Active Substance: FAMOTIDINE
     Indication: PRODUCT USED FOR UNKNOWN INDICATION
     Route: 065

REACTIONS (16)
  - Acute respiratory failure [Unknown]
  - Thrombocytopenia [Unknown]
  - International normalised ratio increased [Not Recovered/Not Resolved]
  - Presyncope [Unknown]
  - Stomatitis [Unknown]
  - Cardiac failure congestive [Fatal]
  - Cardiac failure [Fatal]
  - Occult blood positive [Unknown]
  - Pleural effusion [Unknown]
  - Alveolar lung disease [Unknown]
  - Multi-organ failure [Fatal]
  - Dysphagia [Unknown]
  - Oesophageal spasm [Unknown]
  - Hypovolaemic shock [Unknown]
  - Acute kidney injury [Recovered/Resolved]
  - Gastric ulcer [Unknown]

NARRATIVE: CASE EVENT DATE: 201402
